FAERS Safety Report 4735752-4 (Version None)
Quarter: 2005Q3

REPORT INFORMATION
  Report Type: 
  Country: None (occurrence: None)
  Receive Date: 20050801
  Receipt Date: 20050801
  Transmission Date: 20060218
  Serious: Yes (Hospitalization)
  Sender: FDA-Public Use
  Company Number: None

PATIENT
  Age: 68 Year
  Sex: Male
  Weight: 62 kg

DRUGS (1)
  1. PHENYTOIN [Suspect]
     Indication: CONVULSION
     Dosage: 100 MG PO TID
     Route: 048
     Dates: start: 20041228, end: 20050516

REACTIONS (7)
  - ASTHENIA [None]
  - DIZZINESS [None]
  - DRUG TOXICITY [None]
  - FALL [None]
  - GAIT DISTURBANCE [None]
  - NAUSEA [None]
  - NYSTAGMUS [None]
